APPROVED DRUG PRODUCT: LOPERAMIDE HYDROCHLORIDE
Active Ingredient: LOPERAMIDE HYDROCHLORIDE
Strength: 2MG
Dosage Form/Route: CAPSULE;ORAL
Application: A073080 | Product #001
Applicant: ROXANE LABORATORIES INC
Approved: Nov 27, 1991 | RLD: No | RS: No | Type: DISCN